FAERS Safety Report 25479346 (Version 1)
Quarter: 2025Q2

REPORT INFORMATION
  Report Type: Spontaneous
  Country: TR (occurrence: TR)
  Receive Date: 20250625
  Receipt Date: 20250625
  Transmission Date: 20250717
  Serious: Yes (Other)
  Sender: JOHNSON AND JOHNSON
  Company Number: TR-JNJFOC-20250627194

PATIENT
  Age: 47 Year
  Sex: Male
  Weight: 74 kg

DRUGS (4)
  1. DARZALEX [Suspect]
     Active Substance: DARATUMUMAB
     Indication: Product used for unknown indication
     Route: 042
     Dates: start: 20250121
  2. PREDNISONE [Concomitant]
     Active Substance: PREDNISONE
     Indication: Premedication
     Route: 042
     Dates: start: 20250121, end: 20250121
  3. PANTONIX [Concomitant]
     Indication: Premedication
     Route: 042
     Dates: start: 20250121, end: 20250121
  4. MOPEM [Concomitant]
     Indication: Product used for unknown indication
     Route: 042
     Dates: start: 20250121, end: 20250121

REACTIONS (4)
  - Palatal oedema [Recovering/Resolving]
  - Pruritus [Recovering/Resolving]
  - Dyspnoea [Recovering/Resolving]
  - Infusion related reaction [Recovering/Resolving]

NARRATIVE: CASE EVENT DATE: 20250121
